FAERS Safety Report 5028561-2 (Version None)
Quarter: 2006Q2

REPORT INFORMATION
  Report Type: 
  Country: None (occurrence: None)
  Receive Date: 20060616
  Receipt Date: 20060616
  Transmission Date: 20061013
  Serious: Yes (Hospitalization)
  Sender: FDA-Public Use
  Company Number: None

PATIENT
  Age: 57 Year
  Sex: Male
  Weight: 95.3 kg

DRUGS (2)
  1. DIAZEPAM [Suspect]
     Indication: INSOMNIA
     Dosage: 10MG   HS   PO  DURATION:  60 DAY SUPPLY IN 2 WEEKS
     Route: 048
  2. CLONAZEPAM [Suspect]
     Indication: ANXIETY
     Dosage: 1MG   BID   PO  DURATION:  60 DAY SUPPLY IN 2 WEEKS
     Route: 048

REACTIONS (13)
  - ALCOHOL USE [None]
  - DISTURBANCE IN ATTENTION [None]
  - DRUG DOSE OMISSION [None]
  - DRUG WITHDRAWAL SYNDROME [None]
  - FEELING JITTERY [None]
  - HYPONATRAEMIA [None]
  - INCORRECT DOSE ADMINISTERED [None]
  - POLYDIPSIA PSYCHOGENIC [None]
  - SELF-MEDICATION [None]
  - TANGENTIALITY [None]
  - URINE OSMOLARITY DECREASED [None]
  - URINE SODIUM DECREASED [None]
  - VOMITING [None]
